FAERS Safety Report 5991465-2 (Version None)
Quarter: 2008Q4

REPORT INFORMATION
  Report Type: 
  Country: None (occurrence: None)
  Receive Date: 20081211
  Receipt Date: 20081205
  Transmission Date: 20090506
  Serious: Yes (Other)
  Sender: FDA-Public Use
  Company Number: US-PFIZER INC-2008096314

PATIENT
  Sex: Female

DRUGS (2)
  1. CELEBREX [Suspect]
  2. SULINDAC [Suspect]

REACTIONS (2)
  - NERVOUS SYSTEM DISORDER [None]
  - ULCER [None]
